FAERS Safety Report 5205650-0 (Version None)
Quarter: 2007Q1

REPORT INFORMATION
  Report Type: 
  Country: None (occurrence: None)
  Receive Date: 20070105
  Receipt Date: 20070105
  Transmission Date: 20070707
  Serious: Yes (Hospitalization)
  Sender: FDA-Public Use
  Company Number: None

PATIENT
  Age: 87 Year
  Sex: Female
  Weight: 48.5 kg

DRUGS (8)
  1. DIGOXIN [Suspect]
     Indication: ATRIAL FIBRILLATION
  2. IBUPROFEN [Concomitant]
  3. CALCIUM [Concomitant]
  4. WARFARIN SODIUM [Concomitant]
  5. POLYETHYLENE GLYCOL [Concomitant]
  6. MUTIVITAMINS [Concomitant]
  7. ACETAMINOPHEN [Concomitant]
  8. SL NITROGLYCERIN [Concomitant]

REACTIONS (5)
  - BRADYCARDIA [None]
  - CONFUSIONAL STATE [None]
  - DRUG LEVEL INCREASED [None]
  - HYPERTENSION [None]
  - MENTAL STATUS CHANGES [None]
